FAERS Safety Report 4961592-7 (Version None)
Quarter: 2006Q1

REPORT INFORMATION
  Report Type: 
  Country: None (occurrence: None)
  Receive Date: 20060329
  Receipt Date: 20060319
  Transmission Date: 20060701
  Serious: Yes (Hospitalization, Disabling)
  Sender: FDA-Public Use
  Company Number: 2006033802

PATIENT
  Age: 59 Year
  Sex: Male
  Weight: 81 kg

DRUGS (2)
  1. AMLODIPINE [Suspect]
     Indication: HYPERTENSION
     Dosage: 10 MG, ORAL
     Route: 048
     Dates: start: 20000101, end: 20050901
  2. PERINDOPRIL ERUMINE [Suspect]
     Indication: HYPERTENSION
     Dosage: 4 MG (QD), ORAL
     Route: 048
     Dates: start: 20000101, end: 20051101

REACTIONS (1)
  - JAUNDICE CHOLESTATIC [None]
